FAERS Safety Report 9706773 (Version 2)
Quarter: 2014Q1

REPORT INFORMATION
  Report Type: Report from Study
  Country: US (occurrence: US)
  Receive Date: 20131125
  Receipt Date: 20140120
  Transmission Date: 20141002
  Serious: Yes (Other)
  Sender: FDA-Public Use
  Company Number: PHEH2013US024438

PATIENT
  Age: 49 Year
  Sex: Male

DRUGS (7)
  1. TASIGNA [Suspect]
     Indication: CHRONIC MYELOID LEUKAEMIA
     Dosage: 300 MG, Q12H
     Route: 048
     Dates: start: 20120816
  2. TASIGNA [Suspect]
     Dosage: 150 MG, QD
     Dates: start: 20130730
  3. TASIGNA [Suspect]
     Dosage: 150 MG, BID
     Dates: start: 20131027
  4. HYDROCODONE [Concomitant]
     Indication: PAIN
     Dosage: 15/325 MG, EVERY 4 HOURS
     Dates: start: 20120814
  5. METOPROLOL [Concomitant]
     Indication: HYPERTENSION
     Dosage: 25 MG, BID
     Dates: start: 20130805
  6. TYLENOL [Concomitant]
  7. EXCEDRIN [Concomitant]

REACTIONS (3)
  - Prostate cancer [Unknown]
  - Second primary malignancy [Unknown]
  - Constipation [Recovered/Resolved]
